FAERS Safety Report 14349596 (Version 1)
Quarter: 2018Q1

REPORT INFORMATION
  Report Type: Spontaneous
  Country: GB (occurrence: GB)
  Receive Date: 20180104
  Receipt Date: 20180104
  Transmission Date: 20180509
  Serious: Yes (Hospitalization, Disabling, Other)
  Sender: FDA-Public Use
  Company Number: GB-TORRENT-00008004

PATIENT
  Age: 49 Year
  Sex: Female
  Weight: 54 kg

DRUGS (3)
  1. DOSULEPIN HYDROCHLORIDE [Suspect]
     Active Substance: DOTHIEPIN HYDROCHLORIDE
     Indication: PRODUCT USED FOR UNKNOWN INDICATION
     Dosage: UNK
  2. ARIPIPRAZOLE. [Suspect]
     Active Substance: ARIPIPRAZOLE
     Indication: ACUTE PSYCHOSIS
     Dosage: 20 MG, UNK
     Route: 048
     Dates: start: 201605, end: 20160809
  3. TRIMETHOPRIM. [Suspect]
     Active Substance: TRIMETHOPRIM
     Indication: PRODUCT USED FOR UNKNOWN INDICATION
     Dosage: UNK

REACTIONS (7)
  - Extrapyramidal disorder [Recovered/Resolved]
  - Akinesia [Unknown]
  - Muscle rigidity [Unknown]
  - Salivary hypersecretion [Unknown]
  - Tremor [Unknown]
  - Product use in unapproved indication [Unknown]
  - Dystonia [Unknown]

NARRATIVE: CASE EVENT DATE: 20160707
